FAERS Safety Report 7714657-0 (Version None)
Quarter: 2011Q3

REPORT INFORMATION
  Report Type: 
  Country: None (occurrence: None)
  Receive Date: 20110822
  Receipt Date: 20110812
  Transmission Date: 20111222
  Serious: Yes (Death)
  Sender: FDA-Public Use
  Company Number: GRT 2011-13598

PATIENT
  Age: 26 Year
  Sex: Male

DRUGS (2)
  1. LIDOCAINE [Suspect]
  2. COCAINE [Suspect]

REACTIONS (8)
  - FALL [None]
  - MENINGITIS BACTERIAL [None]
  - ACIDOSIS [None]
  - CYANOSIS [None]
  - MENINGITIS VIRAL [None]
  - CARDIAC ARREST [None]
  - STATUS EPILEPTICUS [None]
  - DRUG ABUSE [None]
